FAERS Safety Report 6762338-2 (Version None)
Quarter: 2010Q2

REPORT INFORMATION
  Report Type: 
  Country: None (occurrence: None)
  Receive Date: 20100609
  Receipt Date: 20100527
  Transmission Date: 20101027
  Serious: Yes (Other)
  Sender: FDA-Public Use
  Company Number: PHHY2010AU34597

PATIENT
  Age: 40 Year
  Sex: Male

DRUGS (1)
  1. EVEROLIMUS [Suspect]
     Indication: TRANSPLANT

REACTIONS (2)
  - ARRHYTHMIA [None]
  - PERICARDIAL EFFUSION [None]
